FAERS Safety Report 8070841-0 (Version None)
Quarter: 2012Q1

REPORT INFORMATION
  Report Type: 
  Country: None (occurrence: None)
  Receive Date: 20120125
  Receipt Date: 20111222
  Transmission Date: 20120608
  Serious: Yes (Hospitalization)
  Sender: FDA-Public Use
  Company Number: JP-GLAXOSMITHKLINE-B0771432A

PATIENT
  Sex: Male

DRUGS (7)
  1. LAMICTAL [Suspect]
     Indication: EPILEPSY
     Dosage: 25MG PER DAY
     Route: 048
     Dates: start: 20100415, end: 20100512
  2. LAMICTAL [Suspect]
     Dosage: 50MG PER DAY
     Route: 048
     Dates: start: 20100513, end: 20100518
  3. DEPAKENE [Concomitant]
     Indication: FEELING ABNORMAL
     Dosage: 800MG PER DAY
     Route: 048
     Dates: start: 20090921
  4. LENDORMIN [Concomitant]
     Indication: INSOMNIA
     Dosage: .25MG PER DAY
     Route: 048
     Dates: start: 20100429, end: 20100610
  5. ARTANE [Concomitant]
     Indication: PROPHYLAXIS
     Dosage: 2MG PER DAY
     Route: 048
     Dates: start: 20090921, end: 20100621
  6. LITHIUM CARBONATE [Concomitant]
     Indication: FEELING ABNORMAL
     Route: 048
     Dates: start: 20090804, end: 20110623
  7. LODOPIN [Concomitant]
     Indication: FEELING ABNORMAL
     Dosage: 25MG PER DAY
     Route: 048
     Dates: start: 20090921, end: 20100621

REACTIONS (7)
  - STOMATITIS [None]
  - RASH [None]
  - OROPHARYNGEAL PAIN [None]
  - SWELLING FACE [None]
  - SKIN DISORDER [None]
  - PYREXIA [None]
  - DRUG RASH WITH EOSINOPHILIA AND SYSTEMIC SYMPTOMS [None]
